FAERS Safety Report 12383198 (Version 2)
Quarter: 2016Q2

REPORT INFORMATION
  Report Type: Spontaneous
  Country: US (occurrence: US)
  Receive Date: 20160518
  Receipt Date: 20160613
  Transmission Date: 20160815
  Serious: No
  Sender: FDA-Public Use
  Company Number: US-PFIZER INC-2016247620

PATIENT
  Sex: Female

DRUGS (1)
  1. ADVIL [Suspect]
     Active Substance: IBUPROFEN
     Dosage: DAILY
     Route: 048

REACTIONS (6)
  - Panic attack [Unknown]
  - Oral discomfort [Unknown]
  - Hypoaesthesia oral [Unknown]
  - Product taste abnormal [Unknown]
  - Dysgeusia [Unknown]
  - Lip pruritus [Unknown]
